FAERS Safety Report 5795870-9 (Version None)
Quarter: 2008Q3

REPORT INFORMATION
  Report Type: 
  Country: None (occurrence: None)
  Receive Date: 20080701
  Receipt Date: 20080606
  Transmission Date: 20090109
  Serious: Yes (Death)
  Sender: FDA-Public Use
  Company Number: CA-NOVOPROD-266975

PATIENT
  Age: 54 Year
  Sex: Male
  Weight: 132 kg

DRUGS (6)
  1. NOVOMIX 30 PENFILL 3 ML [Suspect]
     Indication: DIABETES MELLITUS
  2. METFORMIN [Concomitant]
     Dosage: 1700 MG, QD
     Route: 048
  3. ASAPHEN [Concomitant]
     Dosage: 80 MG, QD
     Route: 048
  4. COZAAR [Concomitant]
     Dosage: 100 MG, QD
     Route: 048
  5. LOZIDE                             /00340101/ [Concomitant]
     Dosage: 1.25 MG, QD
     Route: 048
  6. LIPITOR [Concomitant]
     Dosage: 40 MG, QD
     Route: 048

REACTIONS (1)
  - DEATH [None]
